FAERS Safety Report 5727147-1 (Version None)
Quarter: 2008Q2

REPORT INFORMATION
  Report Type: 
  Country: None (occurrence: None)
  Receive Date: 20080430
  Receipt Date: 20080424
  Transmission Date: 20081010
  Serious: Yes (Life-Threatening)
  Sender: FDA-Public Use
  Company Number: 2008-176279-NL

PATIENT
  Age: 29 Year
  Sex: Female

DRUGS (5)
  1. FOLLITROPIN BETA [Suspect]
     Indication: OVARIAN DISORDER
     Dosage: DF
     Dates: start: 20010601, end: 20041201
  2. CLOMIPHENE CITRATE [Suspect]
     Indication: OVARIAN DISORDER
     Dosage: DF
     Dates: start: 20010101, end: 20010101
  3. CLOMIPHENE CITRATE [Suspect]
     Indication: OVARIAN DISORDER
     Dosage: DF
     Dates: start: 20040101, end: 20040101
  4. CLOMIPHENE CITRATE [Suspect]
     Indication: OVARIAN DISORDER
     Dosage: DF
     Dates: start: 20050101, end: 20050101
  5. UROFOLLITROPIN [Suspect]
     Indication: OVARIAN DISORDER
     Dosage: 200 UG
     Dates: start: 20041201, end: 20050101

REACTIONS (1)
  - BREAST CANCER FEMALE [None]
